FAERS Safety Report 7128553-3 (Version None)
Quarter: 2010Q4

REPORT INFORMATION
  Report Type: 
  Country: None (occurrence: None)
  Receive Date: 20101115
  Receipt Date: 20101102
  Transmission Date: 20110411
  Serious: Yes (Other)
  Sender: FDA-Public Use
  Company Number: B0683764A

PATIENT
  Age: 15 Day
  Sex: Female
  Weight: 2.1773 kg

DRUGS (1)
  1. PROPAFENONE HYDROCHLORIDE [Suspect]
     Indication: SUPRAVENTRICULAR TACHYCARDIA
     Dosage: ORAL
     Route: 048

REACTIONS (1)
  - NEONATAL RESPIRATORY DISTRESS SYNDROME [None]
